FAERS Safety Report 12590332 (Version 1)
Quarter: 2016Q3

REPORT INFORMATION
  Report Type: Report from Study
  Country: US (occurrence: US)
  Receive Date: 20160725
  Receipt Date: 20160725
  Transmission Date: 20161109
  Serious: Yes (Hospitalization)
  Sender: FDA-Public Use
  Company Number: US-ACTELION-A-NJ2016-139275

PATIENT
  Age: 57 Year
  Sex: Female

DRUGS (3)
  1. RIOCIGUAT [Concomitant]
     Active Substance: RIOCIGUAT
  2. OPSUMIT [Suspect]
     Active Substance: MACITENTAN
     Indication: PULMONARY ARTERIAL HYPERTENSION
     Dosage: 10 MG, QD
     Route: 048
     Dates: start: 20150518
  3. REMODULIN [Suspect]
     Active Substance: TREPROSTINIL
     Indication: PRODUCT USED FOR UNKNOWN INDICATION
     Route: 042

REACTIONS (14)
  - Loss of consciousness [Unknown]
  - Chills [Unknown]
  - Muscle spasms [Unknown]
  - Catheter site erythema [Unknown]
  - Lymphoedema [Unknown]
  - Lymphadenopathy [Unknown]
  - Syncope [Unknown]
  - Dehydration [Unknown]
  - Pneumonia [Unknown]
  - Catheter site pain [Unknown]
  - Catheter site swelling [Unknown]
  - Urticaria [Unknown]
  - Hypokalaemia [Unknown]
  - Pyrexia [Unknown]
